FAERS Safety Report 4520965-7 (Version None)
Quarter: 2004Q4

REPORT INFORMATION
  Report Type: 
  Country: None (occurrence: None)
  Receive Date: 20041206
  Receipt Date: 20030109
  Transmission Date: 20050328
  Serious: Yes (Death)
  Sender: FDA-Public Use
  Company Number: DEU-2003-0001137

PATIENT
  Sex: Male

DRUGS (1)
  1. PALLADON (HYDROMORPHONE HYDROCHLORIDE) CR CAPSULE [Suspect]
     Dosage: ORAL
     Route: 048

REACTIONS (1)
  - DEATH [None]
